FAERS Safety Report 5257138-9 (Version None)
Quarter: 2007Q1

REPORT INFORMATION
  Report Type: 
  Country: None (occurrence: None)
  Receive Date: 20070307
  Receipt Date: 20070222
  Transmission Date: 20070707
  Serious: Yes (Congenital Anomaly)
  Sender: FDA-Public Use
  Company Number: US-ROCHE-483946

PATIENT
  Age: 40 Year
  Sex: Female

DRUGS (3)
  1. COPEGUS [Suspect]
     Indication: DRUG USE FOR UNKNOWN INDICATION
     Route: 048
     Dates: start: 20050927, end: 20060307
  2. PEGASYS [Suspect]
     Indication: DRUG USE FOR UNKNOWN INDICATION
     Route: 058
     Dates: start: 20050927, end: 20060307
  3. PRENATAL VITAMINS [Concomitant]
     Indication: PREGNANCY
     Dates: start: 20060715

REACTIONS (2)
  - PREGNANCY [None]
  - TRISOMY 21 [None]
